FAERS Safety Report 4485881-8 (Version None)
Quarter: 2004Q3

REPORT INFORMATION
  Report Type: 
  Country: None (occurrence: None)
  Receive Date: 20040921
  Receipt Date: 20031001
  Transmission Date: 20050211
  Serious: Yes (Hospitalization)
  Sender: FDA-Public Use
  Company Number: 163-20785-03100056

PATIENT
  Age: 56 Year
  Sex: Male
  Weight: 84.369 kg

DRUGS (11)
  1. THALOMID [Suspect]
     Indication: COLORECTAL CANCER METASTATIC
     Dosage: 100 MG, QD, ORAL
     Route: 048
     Dates: start: 20030926, end: 20031003
  2. XELODA [Suspect]
     Indication: COLORECTAL CANCER METASTATIC
     Dosage: 1500 MG, Q.I.D.,
     Dates: start: 20030919
  3. ASPIRIN [Concomitant]
  4. CELEBREX [Concomitant]
  5. MONOPRIL [Concomitant]
  6. GLYBURIDE [Concomitant]
  7. PROCRIT [Concomitant]
  8. DIFLUCAN [Concomitant]
  9. TEMAZEPAM [Concomitant]
  10. REGLAN [Concomitant]
  11. MEGACE [Concomitant]

REACTIONS (12)
  - ANAEMIA [None]
  - BLOOD BILIRUBIN INCREASED [None]
  - COAGULOPATHY [None]
  - DYSPNOEA [None]
  - EPISTAXIS [None]
  - GALLBLADDER DISORDER [None]
  - HAEMATURIA [None]
  - MENTAL STATUS CHANGES [None]
  - PERFORMANCE STATUS DECREASED [None]
  - PRURITUS [None]
  - ULTRASOUND LIVER ABNORMAL [None]
  - WHITE BLOOD CELL COUNT INCREASED [None]
